FAERS Safety Report 16378008 (Version 9)
Quarter: 2019Q4

REPORT INFORMATION
  Report Type: Spontaneous
  Country: US (occurrence: US)
  Receive Date: 20190531
  Receipt Date: 20191224
  Transmission Date: 20200122
  Serious: Yes (Hospitalization, Other)
  Sender: FDA-Public Use
  Company Number: US-PFIZER INC-2018394013

PATIENT
  Age: 70 Year
  Sex: Female
  Weight: 79 kg

DRUGS (8)
  1. LYRICA [Suspect]
     Active Substance: PREGABALIN
     Indication: NEURALGIA
  2. LEVOTHYROXINE. [Concomitant]
     Active Substance: LEVOTHYROXINE
     Dosage: UNK
  3. CELEBREX [Concomitant]
     Active Substance: CELECOXIB
     Dosage: UNK
  4. LYRICA [Suspect]
     Active Substance: PREGABALIN
     Indication: MULTIPLE SCLEROSIS
     Dosage: 450 MG, DAILY (1 IN THE MORNING AND 2 AT NIGHT)(TAKE 3 CAPSULES PER DAY AS DIRECTED)
     Route: 048
     Dates: start: 201809
  5. LYRICA [Suspect]
     Active Substance: PREGABALIN
     Indication: PAIN IN EXTREMITY
     Dosage: 150 MG, 3X/DAY
     Dates: end: 20191104
  6. GLATOPA [Concomitant]
     Active Substance: GLATIRAMER ACETATE
     Indication: MULTIPLE SCLEROSIS
     Dosage: UNK, DAILY(ROTATING SITES IN BELLY,UPPER LEGS, AND UPPER ARM)
     Route: 058
  7. COPAXONE [Concomitant]
     Active Substance: GLATIRAMER ACETATE
     Dosage: UNK
  8. CELEXA [CELECOXIB] [Concomitant]
     Active Substance: CELECOXIB
     Dosage: UNK

REACTIONS (14)
  - Malaise [Not Recovered/Not Resolved]
  - Nausea [Unknown]
  - Withdrawal syndrome [Unknown]
  - Pneumonia [Recovered/Resolved]
  - Tremor [Unknown]
  - Nervousness [Not Recovered/Not Resolved]
  - Hyperhidrosis [Unknown]
  - Headache [Unknown]
  - Nasal injury [Unknown]
  - Insomnia [Unknown]
  - Anxiety [Unknown]
  - Urinary tract infection [Unknown]
  - Aspiration [Recovered/Resolved]
  - Feeling abnormal [Unknown]

NARRATIVE: CASE EVENT DATE: 2019
